FAERS Safety Report 7609953-1 (Version None)
Quarter: 2011Q3

REPORT INFORMATION
  Report Type: 
  Country: None (occurrence: None)
  Receive Date: 20110714
  Receipt Date: 20110224
  Transmission Date: 20111222
  Serious: No
  Sender: FDA-Public Use
  Company Number: US-TYCO HEALTHCARE/MALLINCKRODT-T201100534

PATIENT
  Sex: Female
  Weight: 74.83 kg

DRUGS (7)
  1. KRISTALOSE [Concomitant]
     Indication: CONSTIPATION
     Dosage: 20 MG, BID
  2. LEVOTHYROXINE [Concomitant]
     Indication: HYPOTHYROIDISM
     Dosage: 200 MG, QD
  3. ATENOLOL [Concomitant]
     Indication: BLOOD PRESSURE
     Dosage: 25 UNK, QD
  4. OXYCODONE HCL [Suspect]
     Indication: BREAKTHROUGH PAIN
     Dosage: 1-2 Q6 HRS PRN
     Route: 048
     Dates: start: 20060101
  5. CELEXA [Concomitant]
     Indication: DEPRESSION
     Dosage: 1 1/2 TABS QD
  6. OXYCONTIN [Concomitant]
     Indication: PAIN
     Dosage: 120 MG, Q8 HRS
  7. WELLBUTRIN [Concomitant]
     Indication: DEPRESSION
     Dosage: 150 MG, QD

REACTIONS (1)
  - DRUG SCREEN POSITIVE [None]
